FAERS Safety Report 9446013 (Version 1)
Quarter: 2013Q3

REPORT INFORMATION
  Report Type: Spontaneous
  Country: CH (occurrence: CH)
  Receive Date: 20130807
  Receipt Date: 20130807
  Transmission Date: 20140515
  Serious: Yes (Hospitalization)
  Sender: FDA-Public Use
  Company Number: CH-ASTRAZENECA-2013SE58978

PATIENT
  Age: 64 Year
  Sex: Female

DRUGS (13)
  1. SEROQUEL [Suspect]
     Route: 048
  2. KETALGIN [Suspect]
     Route: 048
  3. KETALGIN [Suspect]
     Route: 048
  4. TRANXILIUM [Suspect]
     Route: 048
  5. TRANXILIUM [Suspect]
     Route: 048
  6. ASPIRIN CARDIO [Concomitant]
     Route: 048
  7. SORTIS [Concomitant]
     Route: 048
  8. TOREM [Concomitant]
     Route: 048
  9. APROVEL [Concomitant]
     Route: 048
  10. LYRICA [Concomitant]
     Dosage: 1 PER 2 DAYS
     Route: 048
  11. KCL [Concomitant]
     Route: 048
  12. CYMBALTA [Concomitant]
     Route: 048
  13. PARACETAMOL [Concomitant]
     Dosage: 1 PER 4 DAYS
     Route: 048

REACTIONS (4)
  - Confusional state [Recovered/Resolved]
  - Pneumonitis [Recovered/Resolved]
  - Drug abuse [Recovered/Resolved]
  - Dyspnoea [Recovered/Resolved]
